FAERS Safety Report 15969564 (Version 2)
Quarter: 2019Q2

REPORT INFORMATION
  Report Type: Spontaneous
  Country: US (occurrence: US)
  Receive Date: 20190215
  Receipt Date: 20190611
  Transmission Date: 20190711
  Serious: Yes (Other)
  Sender: FDA-Public Use
  Company Number: US-PFIZER INC-2019055800

PATIENT
  Age: 80 Year
  Sex: Female
  Weight: 90.7 kg

DRUGS (2)
  1. ROBITUSSIN (GUAIFENESIN) [Suspect]
     Active Substance: GUAIFENESIN
     Indication: COUGH
     Dosage: 1 DF, 1X/DAY [ONE DOSE AT NIGHT]
     Route: 048
  2. ALEVE [Suspect]
     Active Substance: NAPROXEN SODIUM
     Dosage: UNK [TOTAL OF 3 IN THE PAST 2 WEEKS]

REACTIONS (1)
  - Blood urea increased [Recovered/Resolved]
